FAERS Safety Report 18716723 (Version 3)
Quarter: 2021Q1

REPORT INFORMATION
  Report Type: Report from Study
  Country: DE (occurrence: DE)
  Receive Date: 20210108
  Receipt Date: 20210312
  Transmission Date: 20210419
  Serious: Yes (Other)
  Sender: FDA-Public Use
  Company Number: DE-TAKEDA-2021TUS000091

PATIENT
  Age: 54 Year
  Sex: Female

DRUGS (1)
  1. HUMAN IMMUNOGLOBULIN; HYALURONIDASE [Suspect]
     Active Substance: HUMAN IMMUNOGLOBULIN G\HYALURONIDASE RECOMBINANT HUMAN
     Indication: IMMUNODEFICIENCY
     Dosage: 10 GRAM, MONTHLY
     Route: 058
     Dates: start: 20201230, end: 20201230

REACTIONS (3)
  - Headache [Unknown]
  - Drug ineffective [None]
  - Therapy interrupted [Unknown]

NARRATIVE: CASE EVENT DATE: 20201230
